FAERS Safety Report 11823451 (Version 1)
Quarter: 2015Q4

REPORT INFORMATION
  Report Type: Spontaneous
  Country: PL (occurrence: PL)
  Receive Date: 20151210
  Receipt Date: 20151210
  Transmission Date: 20160305
  Serious: Yes (Other)
  Sender: FDA-Public Use
  Company Number: PHHY2015PL159620

PATIENT
  Age: 65 Year
  Sex: Female

DRUGS (1)
  1. PAZOPANIB [Suspect]
     Active Substance: PAZOPANIB
     Indication: MEDIASTINUM NEOPLASM
     Dosage: 800 MG, QD
     Route: 065
     Dates: start: 20141126

REACTIONS (6)
  - Dysphonia [Not Recovered/Not Resolved]
  - Fatigue [Unknown]
  - Mental fatigue [Unknown]
  - Vocal cord paresis [Unknown]
  - Blood pressure increased [Unknown]
  - Venous thrombosis [Recovering/Resolving]

NARRATIVE: CASE EVENT DATE: 20141214
